FAERS Safety Report 6613162-2 (Version None)
Quarter: 2010Q1

REPORT INFORMATION
  Report Type: 
  Country: None (occurrence: None)
  Receive Date: 20100225
  Receipt Date: 20100216
  Transmission Date: 20100710
  Serious: Yes (Other)
  Sender: FDA-Public Use
  Company Number: OPER20100030

PATIENT
  Sex: Female

DRUGS (5)
  1. OPANA ER [Suspect]
     Indication: ARTHRITIS
     Dosage: 40 MG, TID, ORAL; 30 MG, TID, ORAL
     Route: 048
     Dates: start: 20091101, end: 20091101
  2. OPANA ER [Suspect]
     Indication: FIBROMYALGIA
     Dosage: 40 MG, TID, ORAL; 30 MG, TID, ORAL
     Route: 048
     Dates: start: 20091101, end: 20091101
  3. OPANA ER [Suspect]
     Indication: ARTHRITIS
     Dosage: 40 MG, TID, ORAL; 30 MG, TID, ORAL
     Route: 048
     Dates: start: 20091101, end: 20091101
  4. OPANA ER [Suspect]
     Indication: FIBROMYALGIA
     Dosage: 40 MG, TID, ORAL; 30 MG, TID, ORAL
     Route: 048
     Dates: start: 20091101, end: 20091101
  5. LYRICA [Concomitant]

REACTIONS (2)
  - RENAL FAILURE [None]
  - WEIGHT INCREASED [None]
